FAERS Safety Report 17547667 (Version 3)
Quarter: 2020Q2

REPORT INFORMATION
  Report Type: Spontaneous
  Country: US (occurrence: US)
  Receive Date: 20200317
  Receipt Date: 20200629
  Transmission Date: 20200713
  Serious: Yes (Other)
  Sender: FDA-Public Use
  Company Number: US-SHIRE-US202009261

PATIENT
  Sex: Male

DRUGS (2)
  1. VPRIV [Suspect]
     Active Substance: VELAGLUCERASE ALFA
     Indication: GAUCHER^S DISEASE
     Dosage: UNK, 2X A MONTH
     Route: 042
     Dates: start: 20100708
  2. ATB [Concomitant]
     Indication: CELLULITIS

REACTIONS (4)
  - Inability to afford medication [Unknown]
  - Inappropriate schedule of product administration [Unknown]
  - Cellulitis [Recovering/Resolving]
  - Spleen disorder [Not Recovered/Not Resolved]
